FAERS Safety Report 12633559 (Version 1)
Quarter: 2016Q3

REPORT INFORMATION
  Report Type: Spontaneous
  Country: US (occurrence: US)
  Receive Date: 20160809
  Receipt Date: 20160809
  Transmission Date: 20161109
  Serious: No
  Sender: FDA-Public Use
  Company Number: US-ELI_LILLY_AND_COMPANY-US201607008949

PATIENT
  Age: 29 Year
  Sex: Male
  Weight: 113.4 kg

DRUGS (3)
  1. INVEGA [Concomitant]
     Active Substance: PALIPERIDONE
  2. ADCIRCA [Suspect]
     Active Substance: TADALAFIL
     Indication: PRODUCT USED FOR UNKNOWN INDICATION
     Dosage: UNK, UNKNOWN
     Route: 065
  3. LETAIRIS [Suspect]
     Active Substance: AMBRISENTAN
     Indication: PULMONARY HYPERTENSION
     Dosage: 5 MG, QD
     Route: 048
     Dates: start: 20160628

REACTIONS (4)
  - Headache [Unknown]
  - Sciatica [Unknown]
  - Nasal congestion [Unknown]
  - Back pain [Unknown]

NARRATIVE: CASE EVENT DATE: 20160629
